FAERS Safety Report 8579906-8 (Version None)
Quarter: 2012Q3

REPORT INFORMATION
  Report Type: 
  Country: None (occurrence: None)
  Receive Date: 20120731
  Receipt Date: 20120731
  Transmission Date: 20120928
  Serious: Yes (Life-Threatening, Hospitalization)
  Sender: FDA-Public Use
  Company Number: None

PATIENT
  Age: 49 Year
  Sex: Female
  Weight: 122.4712 kg

DRUGS (1)
  1. ASENAPINE 10 MG MERCK SHARP AND DOHME CORP [Suspect]
     Indication: PSYCHOTIC DISORDER
     Dosage: 10 MG DAILY SL
     Route: 060
     Dates: start: 20120615, end: 20120616

REACTIONS (3)
  - SWOLLEN TONGUE [None]
  - RESPIRATORY DISTRESS [None]
  - PHARYNGEAL OEDEMA [None]
